FAERS Safety Report 10370246 (Version 2)
Quarter: 2014Q3

REPORT INFORMATION
  Report Type: Spontaneous
  Country: GB (occurrence: GB)
  Receive Date: 20140808
  Receipt Date: 20140808
  Transmission Date: 20150326
  Serious: Yes (Other)
  Sender: FDA-Public Use
  Company Number: GB-009507513-1407GBR005822

PATIENT
  Age: 22 Year
  Sex: Female

DRUGS (2)
  1. NEXPLANON [Suspect]
     Active Substance: ETONOGESTREL
     Dosage: 3RD IMPLANT, UNK, UNK
     Route: 059
     Dates: start: 20140306
  2. NEXPLANON [Suspect]
     Active Substance: ETONOGESTREL
     Dosage: FORTHER IMPLANTUNK, UNK
     Route: 059
     Dates: start: 2014

REACTIONS (4)
  - Abortion induced [Unknown]
  - Unintended pregnancy [Recovered/Resolved]
  - Product quality issue [Unknown]
  - Medical device complication [Recovered/Resolved]

NARRATIVE: CASE EVENT DATE: 20140306
